FAERS Safety Report 9158384 (Version 1)
Quarter: 2013Q1

REPORT INFORMATION
  Report Type: Spontaneous
  Country: JP (occurrence: JP)
  Receive Date: 20130312
  Receipt Date: 20130312
  Transmission Date: 20140127
  Serious: Yes (Other)
  Sender: FDA-Public Use
  Company Number: JP-TEVA-390018ISR

PATIENT
  Age: 75 Year
  Sex: Male

DRUGS (1)
  1. PREDNISOLONE [Suspect]
     Dosage: 100 MILLIGRAM DAILY;
     Route: 042

REACTIONS (2)
  - Delirium [Recovered/Resolved]
  - Catatonia [Recovered/Resolved]
